FAERS Safety Report 7654622-5 (Version None)
Quarter: 2011Q3

REPORT INFORMATION
  Report Type: 
  Country: None (occurrence: None)
  Receive Date: 20110803
  Receipt Date: 20110721
  Transmission Date: 20111222
  Serious: Yes (Other)
  Sender: FDA-Public Use
  Company Number: DE-MYLANLABS-2011S1015133

PATIENT
  Sex: Female

DRUGS (2)
  1. TERBINAFINE HCL [Suspect]
     Route: 048
     Dates: start: 20110501, end: 20110703
  2. TERBINAFINE HCL [Suspect]
     Indication: ONYCHOMYCOSIS
     Dosage: 2 WOCHEN 1X 250MG
     Route: 048
     Dates: start: 20110506, end: 20110501

REACTIONS (2)
  - FATIGUE [None]
  - HYPERHIDROSIS [None]
